FAERS Safety Report 11184964 (Version 1)
Quarter: 2015Q2

REPORT INFORMATION
  Report Type: Spontaneous
  Country: CA (occurrence: CA)
  Receive Date: 20150612
  Receipt Date: 20150612
  Transmission Date: 20150821
  Serious: Yes (Other)
  Sender: FDA-Public Use
  Company Number: CA-ELI_LILLY_AND_COMPANY-CA201506000722

PATIENT
  Age: 51 Year
  Sex: Male

DRUGS (12)
  1. EPINEPHRINE. [Suspect]
     Active Substance: EPINEPHRINE
     Indication: OVERDOSE
     Dosage: UNK, UNKNOWN
     Route: 065
  2. METHYLENE BLUE. [Suspect]
     Active Substance: METHYLENE BLUE
     Indication: OVERDOSE
     Dosage: 80 MG, UNKNOWN
     Route: 065
  3. INSULIN [Suspect]
     Active Substance: INSULIN NOS
     Indication: OVERDOSE
     Dosage: 60 IU, OTHER
     Route: 048
  4. NOREPINEPHRINE [Suspect]
     Active Substance: NOREPINEPHRINE\NOREPINEPHRINE BITARTRATE
     Indication: OVERDOSE
     Dosage: UNK, UNKNOWN
     Route: 065
  5. OLIMEL [Suspect]
     Active Substance: AMINO ACIDS\DEXTROSE\SOYBEAN OIL
     Indication: OVERDOSE
     Dosage: 960 ML, UNKNOWN
     Route: 042
  6. CALCIUM [Suspect]
     Active Substance: CALCIUM
     Indication: OVERDOSE
     Dosage: UNK, UNKNOWN
     Route: 065
  7. VASOPRESSIN. [Suspect]
     Active Substance: VASOPRESSIN
     Indication: OVERDOSE
     Dosage: UNK, UNKNOWN
     Route: 065
  8. ACTIVATED CHARCOAL [Suspect]
     Active Substance: ACTIVATED CHARCOAL
     Indication: OVERDOSE
     Dosage: UNK, UNKNOWN
     Route: 065
  9. OLIMEL [Suspect]
     Active Substance: AMINO ACIDS\DEXTROSE\SOYBEAN OIL
     Indication: OFF LABEL USE
  10. GLUCOSE [Suspect]
     Active Substance: DEXTROSE
     Indication: OVERDOSE
     Dosage: UNK, UNKNOWN
     Route: 065
  11. GLUCAGON EMERGENCY KIT [Suspect]
     Active Substance: GLUCAGON
     Indication: OVERDOSE
     Dosage: 5.0 MG, UNKNOWN
     Route: 065
  12. ATROPINE [Suspect]
     Active Substance: ATROPINE
     Indication: OVERDOSE
     Dosage: UNK, UNKNOWN
     Route: 065

REACTIONS (2)
  - Hypotension [Recovered/Resolved]
  - Lactic acidosis [Recovered/Resolved]
